FAERS Safety Report 8776597 (Version 1)
Quarter: 2012Q4

REPORT INFORMATION
  Report Type: Report from Study
  Country: FR (occurrence: FR)
  Receive Date: 20120911
  Receipt Date: 20120911
  Transmission Date: 20130627
  Serious: Yes (Death)
  Sender: FDA-Public Use
  Company Number: FR-ROCHE-1120054

PATIENT
  Sex: Female

DRUGS (11)
  1. MABTHERA [Suspect]
     Indication: PEMPHIGOID
     Route: 042
     Dates: start: 20110222, end: 20110308
  2. HYDROCORTISONE [Suspect]
     Indication: PEMPHIGOID
     Route: 048
     Dates: start: 20100820
  3. ARIXTRA [Concomitant]
     Indication: THROMBOSIS PROPHYLAXIS
     Route: 042
     Dates: start: 201105
  4. STAGID [Concomitant]
     Indication: TYPE 2 DIABETES MELLITUS
     Route: 048
     Dates: start: 201105
  5. LANTUS [Concomitant]
     Indication: TYPE 2 DIABETES MELLITUS
     Route: 042
  6. DERMOVAL (FRANCE) [Concomitant]
     Indication: PEMPHIGOID
     Route: 061
     Dates: start: 20100708
  7. LERCAN [Concomitant]
     Indication: HYPERTENSION
     Route: 048
  8. LASILIX [Concomitant]
     Indication: HYPERTENSION
     Route: 048
  9. CACIT D3 [Concomitant]
     Indication: MINERAL SUPPLEMENTATION
     Route: 048
  10. DIFFU K [Concomitant]
     Indication: HYPOKALAEMIA
     Route: 048
  11. FORTICREME [Concomitant]
     Route: 065

REACTIONS (3)
  - Upper gastrointestinal haemorrhage [Fatal]
  - Lower gastrointestinal haemorrhage [Fatal]
  - Cardiac arrest [Fatal]
